FAERS Safety Report 9112193 (Version 1)
Quarter: 2013Q1

REPORT INFORMATION
  Report Type: Spontaneous
  Country: US (occurrence: US)
  Receive Date: 20130219
  Receipt Date: 20130219
  Transmission Date: 20140127
  Serious: No
  Sender: FDA-Public Use
  Company Number: US-BRISTOL-MYERS SQUIBB COMPANY-16364788

PATIENT
  Sex: Female

DRUGS (1)
  1. ORENCIA [Suspect]
     Indication: RHEUMATOID ARTHRITIS
     Dosage: LAST INFUSION:4JAN2012
     Route: 042
     Dates: start: 201111

REACTIONS (6)
  - Mouth ulceration [Unknown]
  - Nasal dryness [Unknown]
  - Dry skin [Unknown]
  - Cough [Unknown]
  - Pharyngeal oedema [Unknown]
  - Dry eye [Unknown]
